FAERS Safety Report 8020668-0 (Version None)
Quarter: 2012Q1

REPORT INFORMATION
  Report Type: 
  Country: None (occurrence: None)
  Receive Date: 20120103
  Receipt Date: 20111227
  Transmission Date: 20120608
  Serious: Yes (Other)
  Sender: FDA-Public Use
  Company Number: US-ASTRAZENECA-2011SE78701

PATIENT
  Age: 77 Year
  Sex: Male

DRUGS (2)
  1. ASPIRIN [Concomitant]
  2. NEXIUM [Suspect]
     Route: 048

REACTIONS (2)
  - WEIGHT DECREASED [None]
  - DIVERTICULITIS [None]
